FAERS Safety Report 6901650-0 (Version None)
Quarter: 2010Q3

REPORT INFORMATION
  Report Type: 
  Country: None (occurrence: None)
  Receive Date: 20100803
  Receipt Date: 20080219
  Transmission Date: 20110219
  Serious: No
  Sender: FDA-Public Use
  Company Number: US-PFIZER INC-2008016104

PATIENT
  Sex: Male

DRUGS (1)
  1. LYRICA [Suspect]
     Dates: end: 20080217

REACTIONS (3)
  - DIPLOPIA [None]
  - DIZZINESS [None]
  - PRURITUS [None]
